FAERS Safety Report 6267349-1 (Version None)
Quarter: 2009Q3

REPORT INFORMATION
  Report Type: 
  Country: None (occurrence: None)
  Receive Date: 20090714
  Receipt Date: 20090706
  Transmission Date: 20100115
  Serious: Yes (Other)
  Sender: FDA-Public Use
  Company Number: B0495085A

PATIENT
  Sex: Male

DRUGS (11)
  1. PAXIL [Suspect]
     Indication: DEPRESSION
     Route: 048
     Dates: start: 20050101
  2. FLUVOXAMINE MALEATE [Concomitant]
     Route: 048
     Dates: end: 20050901
  3. LIMAS [Concomitant]
     Route: 048
     Dates: start: 20060601
  4. CONSTAN [Concomitant]
     Route: 048
     Dates: end: 20051201
  5. WYPAX [Concomitant]
     Route: 048
     Dates: start: 20041110, end: 20041201
  6. HALCION [Concomitant]
     Route: 048
     Dates: end: 20041109
  7. MYSLEE [Concomitant]
     Route: 048
     Dates: start: 20041110, end: 20050201
  8. AMOBAN [Concomitant]
     Route: 048
     Dates: start: 20050201
  9. DOGMATYL [Concomitant]
  10. SELENICA R [Concomitant]
  11. DEPAKENE [Concomitant]
     Route: 048
     Dates: start: 20051201, end: 20060601

REACTIONS (12)
  - ACTIVATION SYNDROME [None]
  - AGGRESSION [None]
  - ANGER [None]
  - ANXIETY [None]
  - APATHY [None]
  - ASTHENIA [None]
  - FEELING GUILTY [None]
  - HOSTILITY [None]
  - IMPULSIVE BEHAVIOUR [None]
  - IRRITABILITY [None]
  - MOOD ALTERED [None]
  - MOOD SWINGS [None]
